FAERS Safety Report 25467213 (Version 2)
Quarter: 2025Q3

REPORT INFORMATION
  Report Type: Report from Study
  Country: US (occurrence: US)
  Receive Date: 20250623
  Receipt Date: 20250711
  Transmission Date: 20251021
  Serious: No
  Sender: BIOVITRUM
  Company Number: US-BIOVITRUM-2025-US-008659

PATIENT
  Age: 44 Year
  Sex: Male

DRUGS (1)
  1. DOPTELET [Suspect]
     Active Substance: AVATROMBOPAG MALEATE
     Indication: Thrombocytopenia
     Route: 048
     Dates: start: 20250607

REACTIONS (1)
  - Platelet count abnormal [Not Recovered/Not Resolved]
